FAERS Safety Report 8366357-4 (Version None)
Quarter: 2012Q2

REPORT INFORMATION
  Report Type: 
  Country: None (occurrence: None)
  Receive Date: 20120517
  Receipt Date: 20120511
  Transmission Date: 20120825
  Serious: Yes (Hospitalization)
  Sender: FDA-Public Use
  Company Number: US-BAYER-2012-047289

PATIENT
  Age: 36 Year
  Sex: Female
  Weight: 119.1 kg

DRUGS (10)
  1. DROSPIRENONE AND ETHINYL ESTRADIOL [Suspect]
     Indication: OVULATION DISORDER
  2. LISINOPRIL [Concomitant]
     Dosage: 20 MG, UNK
     Route: 048
  3. ALBUTEROL SULFATE [Concomitant]
  4. SYNTHROID [Concomitant]
     Dosage: 100 MCG
     Route: 048
  5. QVAR 40 [Concomitant]
  6. DROSPIRENONE AND ETHINYL ESTRADIOL [Suspect]
     Indication: MENSTRUAL CYCLE MANAGEMENT
  7. YASMIN [Suspect]
     Dosage: UNK
  8. YAZ [Suspect]
  9. FEXOFENADINE [Concomitant]
     Dosage: 180 MG, UNK
     Route: 048
  10. IBUPROFEN [Concomitant]
     Dosage: 600 MG, UNK
     Route: 048

REACTIONS (1)
  - PULMONARY EMBOLISM [None]
